FAERS Safety Report 5117167-2 (Version None)
Quarter: 2006Q3

REPORT INFORMATION
  Report Type: 
  Country: None (occurrence: None)
  Receive Date: 20060927
  Receipt Date: 20060927
  Transmission Date: 20061208
  Serious: Yes (Other)
  Sender: FDA-Public Use
  Company Number: None

PATIENT
  Age: 76 Year
  Sex: Male
  Weight: 63.9572 kg

DRUGS (2)
  1. VORICONAZOLE 200MG [Suspect]
     Indication: ASPERGILLOSIS
     Dosage: 200MG BID PO
     Route: 048
     Dates: start: 20060428, end: 20060926
  2. METHOTREXATE [Suspect]
     Indication: RHEUMATOID ARTHRITIS
     Dosage: 10MG WEEKLY PO
     Route: 048
     Dates: start: 20050526, end: 20060912

REACTIONS (6)
  - BLISTER [None]
  - BLOOD CREATININE INCREASED [None]
  - BLOODY DISCHARGE [None]
  - OPEN WOUND [None]
  - PHOTOSENSITIVITY REACTION [None]
  - PLATELET COUNT DECREASED [None]
